FAERS Safety Report 5312358-X (Version None)
Quarter: 2007Q2

REPORT INFORMATION
  Report Type: 
  Country: None (occurrence: None)
  Receive Date: 20070430
  Receipt Date: 20070129
  Transmission Date: 20071010
  Serious: No
  Sender: FDA-Public Use
  Company Number: 2006UW23439

PATIENT
  Age: 74 Year
  Sex: Female

DRUGS (2)
  1. NEXIUM [Suspect]
     Indication: GASTROOESOPHAGEAL REFLUX DISEASE
     Route: 048
     Dates: start: 20061118, end: 20061122
  2. HERBS [Concomitant]
     Indication: BLOOD PRESSURE

REACTIONS (11)
  - ALOPECIA [None]
  - ARTHRALGIA [None]
  - ASTHENOPIA [None]
  - BACK PAIN [None]
  - CHEST DISCOMFORT [None]
  - DIARRHOEA [None]
  - DRUG INEFFECTIVE [None]
  - DRY MOUTH [None]
  - FREQUENT BOWEL MOVEMENTS [None]
  - HEADACHE [None]
  - TONGUE DISORDER [None]
